FAERS Safety Report 7055796-X (Version None)
Quarter: 2010Q4

REPORT INFORMATION
  Report Type: 
  Country: None (occurrence: None)
  Receive Date: 20101021
  Receipt Date: 20101015
  Transmission Date: 20110411
  Serious: Yes (Death, Life-Threatening, Hospitalization)
  Sender: FDA-Public Use
  Company Number: DE-ROCHE-734633

PATIENT
  Sex: Male
  Weight: 68 kg

DRUGS (6)
  1. PEGINTERFERON ALFA-2A [Suspect]
     Route: 058
     Dates: start: 20100422, end: 20100509
  2. RIBAVIRIN [Suspect]
     Route: 048
     Dates: start: 20100422, end: 20100509
  3. CERTICAN [Concomitant]
     Route: 048
  4. PANTOPRAZOLE SODIUM [Concomitant]
     Route: 048
  5. ACTONEL [Concomitant]
  6. FUROSEMID [Concomitant]

REACTIONS (3)
  - RESPIRATORY FAILURE [None]
  - SEPSIS [None]
  - SEPTIC SHOCK [None]
